FAERS Safety Report 16246546 (Version 1)
Quarter: 2019Q2

REPORT INFORMATION
  Report Type: Report from Study
  Country: None (occurrence: US)
  Receive Date: 20190427
  Receipt Date: 20190427
  Transmission Date: 20190711
  Serious: Yes (Hospitalization)
  Sender: FDA-Public Use
  Company Number: US-ABBVIE-19K-163-2755554-00

PATIENT
  Age: 92 Year
  Sex: Male

DRUGS (1)
  1. VENCLEXTA [Suspect]
     Active Substance: VENETOCLAX
     Indication: ACUTE MYELOID LEUKAEMIA
     Route: 048
     Dates: start: 20190408

REACTIONS (5)
  - Transfusion reaction [Recovering/Resolving]
  - Haemoglobin decreased [Recovering/Resolving]
  - Feeling cold [Recovering/Resolving]
  - Pneumonia [Recovering/Resolving]
  - Disorientation [Recovering/Resolving]

NARRATIVE: CASE EVENT DATE: 201904
